FAERS Safety Report 11734511 (Version 2)
Quarter: 2016Q3

REPORT INFORMATION
  Report Type: Report from Study
  Country: FR (occurrence: FR)
  Receive Date: 20151113
  Receipt Date: 20160830
  Transmission Date: 20161109
  Serious: Yes (Congenital Anomaly, Other)
  Sender: FDA-Public Use
  Company Number: FR-009507513-1010USA01114B1

PATIENT
  Age: 1 Day
  Sex: Female
  Weight: 1.69 kg

DRUGS (14)
  1. VIREAD [Suspect]
     Active Substance: TENOFOVIR DISOPROXIL FUMARATE
     Dosage: COURSE 2
     Dates: start: 20091119, end: 20100406
  2. REYATAZ [Suspect]
     Active Substance: ATAZANAVIR SULFATE
     Indication: PRODUCT USED FOR UNKNOWN INDICATION
     Dosage: UNK
     Route: 064
     Dates: start: 20091119, end: 20100406
  3. VIREAD [Suspect]
     Active Substance: TENOFOVIR DISOPROXIL FUMARATE
     Dosage: COURSE 1
     Route: 064
     Dates: end: 20091001
  4. CLAMOXYL [Suspect]
     Active Substance: AMOXICILLIN\CLAVULANIC ACID
     Dosage: DURING THE 2ND AND 3RD TRIMESTER OF PREGNANCY
     Route: 064
  5. LOXEN [Suspect]
     Active Substance: NICARDIPINE HYDROCHLORIDE
     Dosage: DURING THE 2ND AND 3RD TRIMESTER OF PREGNANCY
     Route: 064
  6. SPASFON [Suspect]
     Active Substance: PHLOROGLUCINOL
     Dosage: DURING THE 2ND AND 3RD TRIMESTER OF PREGNANCY
     Route: 064
  7. SUSTIVA [Suspect]
     Active Substance: EFAVIRENZ
     Indication: PRODUCT USED FOR UNKNOWN INDICATION
     Dosage: COURSE 1
     Route: 064
     Dates: end: 20091001
  8. ZIAGEN [Suspect]
     Active Substance: ABACAVIR SULFATE
     Dosage: COURSE 1
     Route: 064
     Dates: end: 20091001
  9. ZIAGEN [Suspect]
     Active Substance: ABACAVIR SULFATE
     Dosage: COURSE 2
     Route: 064
     Dates: start: 20091119, end: 20100406
  10. MICARDIS PLUS [Suspect]
     Active Substance: HYDROCHLOROTHIAZIDE\TELMISARTAN
     Dosage: DURING THE 2ND AND 3RD TRIMESTER OF PREGNANCY
     Route: 064
  11. NORVIR [Suspect]
     Active Substance: RITONAVIR
     Dosage: UNK
     Route: 064
     Dates: start: 20091119, end: 20100406
  12. CELESTENE [Suspect]
     Active Substance: BETAMETHASONE
     Dosage: DURING THE 2ND AND THE 3RD TRIMESTER OF PREGNANCY
     Route: 064
  13. RETROVIR [Suspect]
     Active Substance: ZIDOVUDINE
     Route: 064
     Dates: start: 20100406, end: 20100406
  14. VITAMIN D [Suspect]
     Active Substance: CHOLECALCIFEROL
     Dosage: DURING THE 3RD TRIMESTER OF PREGNANCY
     Route: 064
     Dates: start: 201002

REACTIONS (7)
  - Ventricular hypoplasia [Unknown]
  - Premature baby [Unknown]
  - Congenital tricuspid valve atresia [Unknown]
  - Congenital pulmonary valve atresia [Unknown]
  - Cardiomegaly [Unknown]
  - Neonatal respiratory distress syndrome [Unknown]
  - Foetal exposure during pregnancy [Recovered/Resolved]

NARRATIVE: CASE EVENT DATE: 20100406
